FAERS Safety Report 9482459 (Version 2)
Quarter: 2013Q3

REPORT INFORMATION
  Report Type: Spontaneous
  Country: US (occurrence: US)
  Receive Date: 20130828
  Receipt Date: 20130925
  Transmission Date: 20140515
  Serious: Yes (Other)
  Sender: FDA-Public Use
  Company Number: US-PFIZER INC-2013248050

PATIENT
  Age: 66 Year
  Sex: Male
  Weight: 81.63 kg

DRUGS (41)
  1. LIPITOR [Suspect]
     Dosage: 40 MG, DAILY
     Route: 048
  2. CELEBREX [Suspect]
     Dosage: UNK
  3. VIAGRA [Suspect]
     Dosage: UNK
  4. PREDNISOLONE [Concomitant]
  5. ACYCLOVIR [Concomitant]
     Indication: HERPES SIMPLEX
     Dosage: 200 MG, EVERY 3 HOURS (DAILY)
     Route: 048
  6. ADDERALL XR [Concomitant]
     Indication: ATTENTION DEFICIT/HYPERACTIVITY DISORDER
     Dosage: 25 MG, DAILY
     Route: 048
  7. ADDERALL XR [Concomitant]
     Indication: INSOMNIA
  8. ALLOPURINOL [Concomitant]
     Indication: GOUT
     Dosage: 100 MG, DAILY
     Route: 048
  9. ALPRAZOLAM [Concomitant]
     Indication: ANXIETY
     Dosage: 1 MG, AS DIRECTED DAILY
     Route: 048
  10. AMLODIPINE BESILATE [Concomitant]
     Indication: ESSENTIAL HYPERTENSION
     Dosage: 10 MG, DAILY (WINTER USE)
     Route: 048
  11. AMLODIPINE BESILATE [Concomitant]
     Indication: BLOOD DISORDER
     Dosage: 5 MG, DAILY
     Route: 048
  12. AMPHETAMINE-DEXTROAMPHET ER [Concomitant]
     Indication: ATTENTION DEFICIT/HYPERACTIVITY DISORDER
     Dosage: 25 MG, DAILY
     Route: 048
  13. AMPHETAMINE-DEXTROAMPHET ER [Concomitant]
     Indication: ATTENTION DEFICIT/HYPERACTIVITY DISORDER
  14. ELIDEL [Concomitant]
     Indication: ECZEMA
     Dosage: 1 %, 2X/DAY, (AM AND PM)
     Route: 061
  15. FLUOCINONIDE [Concomitant]
     Indication: ECZEMA
     Dosage: 0.05 %, 4X/DAY
     Route: 061
  16. FLUOCINONIDE [Concomitant]
     Dosage: 0.05 %, AS NEEDED
     Route: 061
  17. FOLIC ACID [Concomitant]
     Indication: RHEUMATOID ARTHRITIS
     Dosage: 1 MG, DAILY
     Route: 048
  18. FUROSEMIDE [Concomitant]
     Indication: HYPERTENSION
     Dosage: 40 MG, DAILY
     Route: 048
  19. HYDROCHLOROTHIAZIDE [Concomitant]
     Indication: HYPERTENSION
     Dosage: 12.5 MG, DAILY
     Route: 048
  20. HYDROCORTISONE [Concomitant]
     Dosage: 2.5 %, AS NEEDED
     Route: 061
  21. KETOCONAZOLE [Concomitant]
     Dosage: 2 %, UNK
     Route: 061
  22. KETOCONAZOLE [Concomitant]
     Indication: ECZEMA
     Dosage: 2 %, AS DIRECTED
     Route: 061
  23. KLOR-CON 10 [Concomitant]
     Indication: HYPOKALAEMIA
     Dosage: 10 MEQ, DAILY
     Route: 048
  24. LEVOTHYROXINE SODIUM [Concomitant]
     Indication: HYPOTHYROIDISM
     Dosage: 50 UG, DAILY
     Route: 048
  25. LOSARTAN POTASSIUM [Concomitant]
     Indication: HYPERTENSION
     Dosage: 50 MG, DAILY
     Route: 048
  26. METHOTREXATE [Concomitant]
     Indication: RHEUMATOID ARTHRITIS
     Dosage: 25 MG (10 TABLETS OF 2.5 MG), WEEKLY
     Route: 048
  27. NAPROXEN [Concomitant]
     Indication: ARTHRALGIA
     Dosage: 500 MG, EVERY 12 HOURS
     Route: 048
  28. OMEPRAZOLE [Concomitant]
     Indication: GASTROOESOPHAGEAL REFLUX DISEASE
     Dosage: 20 MG, 1X/DAY (EVERY MORNING)
     Route: 048
  29. OMEPRAZOLE [Concomitant]
     Dosage: 40 MG, 1X/DAY
     Route: 048
  30. PREDNISONE [Concomitant]
     Indication: ARTHRITIS
     Dosage: 10 MG, 1X/DAY
     Route: 048
  31. PREDNISONE [Concomitant]
     Indication: POLYMYALGIA RHEUMATICA
     Dosage: 5 MG, AS DIRECTED
     Route: 048
  32. SELENIUM SULFIDE [Concomitant]
     Dosage: 2.25 %, UNK
     Route: 061
  33. SELENIUM SULF PYRITHIONE UREA [Concomitant]
     Indication: ECZEMA
     Dosage: 2.25 %, AS DIRECTED
     Route: 061
  34. SEROQUEL [Concomitant]
     Indication: ATTENTION DEFICIT/HYPERACTIVITY DISORDER
     Dosage: 100 MG, DAILY
     Route: 048
  35. SIMVASTATIN [Concomitant]
     Indication: HYPERLIPIDAEMIA
     Dosage: 40 MG, DAILY
     Route: 048
  36. TEMAZEPAM [Concomitant]
     Indication: INSOMNIA
     Dosage: 15 MG, AT BED TIME
     Route: 048
  37. TRAMADOL HYDROCHLORIDE [Concomitant]
     Indication: ARTHRALGIA
     Dosage: 50 MG, EVERY 6 HOURS AS NEEDED
     Route: 048
  38. TRAZODONE HYDROCHLORIDE [Concomitant]
     Indication: ANXIETY
     Dosage: 50 MG, DAILY
     Route: 048
  39. VALSARTAN/ HYDROCHLOROTHIAZIDE [Concomitant]
     Indication: ESSENTIAL HYPERTENSION
     Dosage: [VALSARTAN 80MG]/ [HYDROCHLOROTHIAZIDE 12.5MG], 1X/DAY
     Route: 048
  40. VALSARTAN/ HYDROCHLOROTHIAZIDE [Concomitant]
     Indication: BLOOD PRESSURE
  41. VENLAFAXINE HYDROCHLORIDE [Concomitant]
     Indication: DEPRESSION
     Dosage: 225 MG (3 TABLETS OF 75 MG), DAILY
     Route: 048

REACTIONS (4)
  - Rheumatoid arthritis [Unknown]
  - Memory impairment [Unknown]
  - Mouth ulceration [Unknown]
  - Body mass index increased [Unknown]
